FAERS Safety Report 11577062 (Version 1)
Quarter: 2015Q3

REPORT INFORMATION
  Report Type: Report from Study
  Country: DE (occurrence: DE)
  Receive Date: 20150930
  Receipt Date: 20150930
  Transmission Date: 20151125
  Serious: Yes (Hospitalization)
  Sender: FDA-Public Use
  Company Number: DE-GLAXOSMITHKLINE-DE2015GSK138123

PATIENT
  Sex: Male

DRUGS (12)
  1. PAZOPANIB [Suspect]
     Active Substance: PAZOPANIB
     Indication: METASTATIC RENAL CELL CARCINOMA
     Dosage: 800 MG, UNK
     Dates: start: 20140206
  2. SORAFENIB [Suspect]
     Active Substance: SORAFENIB
     Indication: METASTATIC RENAL CELL CARCINOMA
     Dosage: 800 MG, UNK
     Dates: start: 20150810
  3. NOVALGIN [Concomitant]
     Active Substance: METAMIZOLE SODIUM
  4. ARCOXIA [Concomitant]
     Active Substance: ETORICOXIB
  5. LYRICA [Concomitant]
     Active Substance: PREGABALIN
  6. OXYCODON [Concomitant]
     Active Substance: OXYCODONE
  7. PANTOZOL [Concomitant]
     Active Substance: PANTOPRAZOLE SODIUM
  8. ETORICOXIB [Concomitant]
     Active Substance: ETORICOXIB
  9. LOPERAMIDE [Concomitant]
     Active Substance: LOPERAMIDE
  10. XGEVA [Concomitant]
     Active Substance: DENOSUMAB
  11. IDEOS [Concomitant]
     Active Substance: CALCIUM CARBONATE\CHOLECALCIFEROL
  12. RADIATION THERAPY [Concomitant]
     Active Substance: RADIATION THERAPY

REACTIONS (1)
  - Pain in extremity [Not Recovered/Not Resolved]

NARRATIVE: CASE EVENT DATE: 20150811
